FAERS Safety Report 25645805 (Version 1)
Quarter: 2025Q3

REPORT INFORMATION
  Report Type: Spontaneous
  Country: TW (occurrence: TW)
  Receive Date: 20250805
  Receipt Date: 20250805
  Transmission Date: 20251020
  Serious: Yes (Death, Hospitalization, Other)
  Sender: AMGEN
  Company Number: TW-AMGEN-TWNSP2025150071

PATIENT

DRUGS (2)
  1. EVOLOCUMAB [Suspect]
     Active Substance: EVOLOCUMAB
     Indication: Arteriosclerosis
     Route: 065
  2. EVOLOCUMAB [Suspect]
     Active Substance: EVOLOCUMAB
     Indication: Cardiac failure

REACTIONS (11)
  - Death [Fatal]
  - Unevaluable event [Unknown]
  - Cardiac failure [Unknown]
  - Cholecystitis acute [Unknown]
  - Gastric ulcer [Unknown]
  - Diabetic ketoacidosis [Unknown]
  - Pancreatitis acute [Unknown]
  - Impaired gastric emptying [Unknown]
  - Intestinal obstruction [Unknown]
  - Urinary tract infection [Unknown]
  - Fracture [Unknown]
